FAERS Safety Report 18963472 (Version 1)
Quarter: 2021Q1

REPORT INFORMATION
  Report Type: Spontaneous
  Country: US (occurrence: US)
  Receive Date: 20210303
  Receipt Date: 20210303
  Transmission Date: 20210420
  Serious: Yes (Hospitalization)
  Sender: FDA-Public Use
  Company Number: None

PATIENT
  Age: 80 Year
  Sex: Female
  Weight: 40.1 kg

DRUGS (5)
  1. ATORVASTATIN 40 MG [Concomitant]
     Active Substance: ATORVASTATIN
     Dates: start: 20210106
  2. FAMOTIDINE 20 MG [Concomitant]
     Active Substance: FAMOTIDINE
     Dates: start: 20150304
  3. BUMETANIDE 1 MG [Concomitant]
     Active Substance: BUMETANIDE
     Dates: start: 20210106
  4. EMPAGLIFLOZIN [Suspect]
     Active Substance: EMPAGLIFLOZIN
     Indication: TYPE 2 DIABETES MELLITUS
     Route: 048
     Dates: start: 20210102, end: 20210108
  5. ASPIRIN EC TABLET [Concomitant]
     Dates: start: 20201230

REACTIONS (4)
  - Cardiac tamponade [None]
  - Metabolic acidosis [None]
  - Cardiogenic shock [None]
  - Diabetic ketoacidosis [None]

NARRATIVE: CASE EVENT DATE: 20210108
